FAERS Safety Report 20968270 (Version 8)
Quarter: 2023Q1

REPORT INFORMATION
  Report Type: Report from Study
  Country: US (occurrence: US)
  Receive Date: 20220616
  Receipt Date: 20230202
  Transmission Date: 20230417
  Serious: No
  Sender: FDA-Public Use
  Company Number: US-NOVARTISTESTPH-NVSC2022US136920

PATIENT
  Age: 63 Year
  Sex: Female
  Weight: 56.236 kg

DRUGS (6)
  1. TREPROSTINIL [Suspect]
     Active Substance: TREPROSTINIL
     Indication: Pulmonary arterial hypertension
     Dosage: 7NG/KG/MIN, CONT
     Route: 058
     Dates: start: 20220606
  2. TREPROSTINIL [Suspect]
     Active Substance: TREPROSTINIL
     Dosage: 25 NG/KG/MIN, CONT
     Route: 058
     Dates: start: 20220606
  3. TREPROSTINIL [Suspect]
     Active Substance: TREPROSTINIL
     Dosage: 14NG/KG/MIN, CONT
     Route: 058
  4. TREPROSTINIL [Suspect]
     Active Substance: TREPROSTINIL
     Dosage: 25 NG/KG/MIN, CONT
     Route: 058
  5. SILDENAFIL CITRATE [Concomitant]
     Active Substance: SILDENAFIL CITRATE
     Indication: Product used for unknown indication
     Dosage: UNK
     Route: 065
  6. OPSUMIT [Concomitant]
     Active Substance: MACITENTAN
     Indication: Product used for unknown indication
     Dosage: UNK
     Route: 065

REACTIONS (11)
  - Malaise [Unknown]
  - Intentional product use issue [Unknown]
  - Nasal congestion [Unknown]
  - Pain [Not Recovered/Not Resolved]
  - Pain in extremity [Recovered/Resolved]
  - Headache [Unknown]
  - Diarrhoea [Recovered/Resolved]
  - Asthenia [Unknown]
  - Fatigue [Unknown]
  - Infusion site pain [Unknown]
  - Infusion site warmth [Unknown]

NARRATIVE: CASE EVENT DATE: 20220606
